FAERS Safety Report 5981119-0 (Version None)
Quarter: 2008Q4

REPORT INFORMATION
  Report Type: 
  Country: None (occurrence: None)
  Receive Date: 20081205
  Receipt Date: 20081126
  Transmission Date: 20090506
  Serious: Yes (Other)
  Sender: FDA-Public Use
  Company Number: BE-WYE-H06977008

PATIENT
  Sex: Male
  Weight: 80 kg

DRUGS (4)
  1. TACROLIMUS [Suspect]
     Indication: PROPHYLAXIS AGAINST TRANSPLANT REJECTION
     Route: 048
  2. URSO FALK [Concomitant]
     Route: 048
     Dates: start: 20070128
  3. GLURENORM [Concomitant]
     Indication: DIABETES MELLITUS
     Route: 048
     Dates: start: 20070301
  4. MYCOPHENOLATE MOFETIL [Concomitant]
     Indication: PROPHYLAXIS AGAINST TRANSPLANT REJECTION
     Route: 048

REACTIONS (1)
  - ALPHA 1 FOETOPROTEIN INCREASED [None]
